FAERS Safety Report 20740673 (Version 1)
Quarter: 2022Q2

REPORT INFORMATION
  Report Type: Spontaneous
  Country: JP (occurrence: JP)
  Receive Date: 20220422
  Receipt Date: 20220422
  Transmission Date: 20220721
  Serious: Yes (Other)
  Sender: FDA-Public Use
  Company Number: JP-DSJP-DSJ-2022-113747

PATIENT
  Age: 75 Year
  Sex: Male

DRUGS (1)
  1. PRASUGREL HYDROCHLORIDE [Suspect]
     Active Substance: PRASUGREL HYDROCHLORIDE
     Indication: Myocardial infarction
     Dosage: UNK
     Route: 048

REACTIONS (2)
  - Systemic lupus erythematosus [Recovering/Resolving]
  - Thrombotic thrombocytopenic purpura [Recovering/Resolving]
